FAERS Safety Report 16840996 (Version 1)
Quarter: 2019Q3

REPORT INFORMATION
  Report Type: Spontaneous
  Country: US (occurrence: US)
  Receive Date: 20190923
  Receipt Date: 20190923
  Transmission Date: 20191005
  Serious: Yes (Other)
  Sender: FDA-Public Use
  Company Number: US-AMERICAN REGENT INC-2019002088

PATIENT
  Age: 2 Decade
  Sex: Male

DRUGS (1)
  1. INJECTAFER [Suspect]
     Active Substance: FERRIC CARBOXYMALTOSE
     Indication: COLITIS ULCERATIVE
     Dosage: UNK UNK, SINGLE
     Route: 042
     Dates: start: 2019, end: 2019

REACTIONS (6)
  - Head injury [Unknown]
  - Dehydration [Unknown]
  - Presyncope [Unknown]
  - Product use in unapproved indication [Unknown]
  - Tremor [Recovered/Resolved]
  - Fall [Recovered/Resolved]

NARRATIVE: CASE EVENT DATE: 2019
